FAERS Safety Report 6725167-1 (Version None)
Quarter: 2010Q2

REPORT INFORMATION
  Report Type: 
  Country: None (occurrence: None)
  Receive Date: 20100513
  Receipt Date: 20100513
  Transmission Date: 20101027
  Serious: Yes (Disabling)
  Sender: FDA-Public Use
  Company Number: None

PATIENT
  Age: 26 Year
  Sex: Female
  Weight: 48.9885 kg

DRUGS (2)
  1. BETHANECHOL [Suspect]
     Indication: BLADDER DISORDER
     Dosage: 25MG TID BY MOUTH USED FOR 4 TO 5 WEEKS
  2. BETHANECHOL [Suspect]
     Indication: RESIDUAL URINE
     Dosage: 25MG TID BY MOUTH USED FOR 4 TO 5 WEEKS

REACTIONS (3)
  - DIPLOPIA [None]
  - PHOTOPSIA [None]
  - VISUAL IMPAIRMENT [None]
